FAERS Safety Report 10234607 (Version 1)
Quarter: 2014Q2

REPORT INFORMATION
  Report Type: Spontaneous
  Country: US (occurrence: US)
  Receive Date: 20140613
  Receipt Date: 20140613
  Transmission Date: 20141212
  Serious: No
  Sender: FDA-Public Use
  Company Number: US-009507513-1406USA004305

PATIENT
  Age: 57 Year
  Sex: Female

DRUGS (1)
  1. TEMODAR [Suspect]
     Indication: NEOPLASM MALIGNANT
     Dosage: 300 MG, FOR 5 DAYS EVERY 28 DAYS
     Route: 048
     Dates: start: 20140314

REACTIONS (1)
  - Adverse event [Unknown]
